FAERS Safety Report 12156220 (Version 1)
Quarter: 2016Q1

REPORT INFORMATION
  Report Type: Spontaneous
  Country: CH (occurrence: CH)
  Receive Date: 20160307
  Receipt Date: 20160307
  Transmission Date: 20160526
  Serious: Yes (Congenital Anomaly, Other)
  Sender: FDA-Public Use
  Company Number: CH-JNJFOC-20160301516

PATIENT
  Sex: Male

DRUGS (1)
  1. CONCERTA [Suspect]
     Active Substance: METHYLPHENIDATE HYDROCHLORIDE
     Indication: PSYCHOMOTOR HYPERACTIVITY
     Dosage: PARENT DOSE
     Route: 064
     Dates: start: 2005, end: 20150318

REACTIONS (3)
  - Craniosynostosis [Recovered/Resolved]
  - Foetal exposure during pregnancy [Recovered/Resolved]
  - Skeletal dysplasia [Recovered/Resolved]

NARRATIVE: CASE EVENT DATE: 2015
